FAERS Safety Report 11548217 (Version 1)
Quarter: 2015Q3

REPORT INFORMATION
  Report Type: Spontaneous
  Country: US (occurrence: US)
  Receive Date: 20150924
  Receipt Date: 20150924
  Transmission Date: 20151125
  Serious: No
  Sender: FDA-Public Use
  Company Number: US-INCYTE CORPORATION-2015IN000975

PATIENT
  Sex: Female

DRUGS (22)
  1. JAKAFI [Suspect]
     Active Substance: RUXOLITINIB
     Indication: POLYCYTHAEMIA VERA
     Dosage: 15 MG, BID
     Route: 048
     Dates: start: 201502
  2. ASPIRIN. [Concomitant]
     Active Substance: ASPIRIN
  3. STOOL SOFTENER [Concomitant]
     Active Substance: DOCUSATE CALCIUM
  4. GABAPENTIN. [Concomitant]
     Active Substance: GABAPENTIN
  5. METHOCARBAMOL. [Concomitant]
     Active Substance: METHOCARBAMOL
  6. MONTELUKAST [Concomitant]
     Active Substance: MONTELUKAST SODIUM
  7. VITAMIN D                          /00107901/ [Concomitant]
     Active Substance: ERGOCALCIFEROL
  8. CALCIUM [Concomitant]
     Active Substance: CALCIUM
  9. SIMVASTATIN. [Concomitant]
     Active Substance: SIMVASTATIN
  10. METFORMIN [Concomitant]
     Active Substance: METFORMIN HYDROCHLORIDE
  11. LISINOPRIL. [Concomitant]
     Active Substance: LISINOPRIL
  12. MULTIVITAMIN                       /00097801/ [Concomitant]
     Active Substance: VITAMINS
  13. VITAMIN B [Concomitant]
     Active Substance: VITAMIN B
  14. VITAMIN E [Concomitant]
     Active Substance: .ALPHA.-TOCOPHEROL
  15. COENZYME Q10 [Concomitant]
     Active Substance: UBIDECARENONE
  16. VITAMIN C [Concomitant]
     Active Substance: ASCORBIC ACID
  17. GLIPIZIDE. [Concomitant]
     Active Substance: GLIPIZIDE
  18. CHONDROITIN [Concomitant]
     Active Substance: CHONDROITIN
  19. JAKAFI [Suspect]
     Active Substance: RUXOLITINIB
     Dosage: 20 MG, BID
     Route: 048
     Dates: start: 2015
  20. HYDROCODONE [Concomitant]
     Active Substance: HYDROCODONE
  21. DULOXETINE. [Concomitant]
     Active Substance: DULOXETINE
  22. FISH OIL [Concomitant]
     Active Substance: FISH OIL

REACTIONS (2)
  - Drug dose omission [Unknown]
  - Pruritus [Unknown]

NARRATIVE: CASE EVENT DATE: 2015
